FAERS Safety Report 7424325-0 (Version None)
Quarter: 2011Q2

REPORT INFORMATION
  Report Type: 
  Country: None (occurrence: None)
  Receive Date: 20110405
  Receipt Date: 20110323
  Transmission Date: 20111010
  Serious: Yes (Hospitalization, Other)
  Sender: FDA-Public Use
  Company Number: 2011PROUSA00233

PATIENT
  Age: 74 Year
  Sex: Male
  Weight: 83.4 kg

DRUGS (5)
  1. PROVENGE [Suspect]
  2. PROVENGE [Suspect]
  3. PROVENGE [Suspect]
     Indication: PROSTATE CANCER METASTATIC
     Dosage: 250 ML, SINGLE, INTRAVENOUS
     Dates: start: 20110110, end: 20110110
  4. PROVENGE [Suspect]
     Indication: PROSTATE CANCER METASTATIC
     Dosage: 250 ML, SINGLE, INTRAVENOUS
     Dates: start: 20110124, end: 20110124
  5. PROVENGE [Suspect]
     Indication: PROSTATE CANCER METASTATIC
     Dosage: 250 ML, SINGLE, INTRAVENOUS
     Dates: start: 20101213, end: 20101213

REACTIONS (10)
  - FATIGUE [None]
  - PROSTATE CANCER METASTATIC [None]
  - PAIN [None]
  - BONE PAIN [None]
  - DISEASE PROGRESSION [None]
  - FALL [None]
  - ANAEMIA [None]
  - METASTASES TO CENTRAL NERVOUS SYSTEM [None]
  - METASTASES TO SPINE [None]
  - ASTHENIA [None]
